FAERS Safety Report 7030808-8 (Version None)
Quarter: 2010Q4

REPORT INFORMATION
  Report Type: 
  Country: None (occurrence: None)
  Receive Date: 20101006
  Receipt Date: 20100928
  Transmission Date: 20110411
  Serious: No
  Sender: FDA-Public Use
  Company Number: US-PFIZER INC-2010123387

PATIENT
  Sex: Female
  Weight: 104.31 kg

DRUGS (6)
  1. XALATAN [Suspect]
     Indication: GLAUCOMA
     Dosage: UNK
     Route: 047
  2. LATANOPROST [Suspect]
  3. RELAFEN [Concomitant]
     Indication: INTERVERTEBRAL DISC DEGENERATION
     Dosage: 500 MG, 4X/DAY
     Route: 048
  4. RELAFEN [Concomitant]
     Indication: BACK DISORDER
  5. NEXIUM [Concomitant]
     Indication: OESOPHAGEAL HYPOMOTILITY
     Dosage: 40 MG, 1X/DAY
     Route: 048
  6. LIPITOR [Concomitant]
     Indication: BLOOD CHOLESTEROL INCREASED
     Dosage: 20 MG, 1X/DAY
     Route: 048

REACTIONS (5)
  - DRUG INEFFECTIVE [None]
  - DRUG INTOLERANCE [None]
  - EYE IRRITATION [None]
  - EYE PRURITUS [None]
  - SINUS DISORDER [None]
